FAERS Safety Report 5029670-4 (Version None)
Quarter: 2006Q2

REPORT INFORMATION
  Report Type: 
  Country: None (occurrence: None)
  Receive Date: 20060620
  Receipt Date: 20060501
  Transmission Date: 20061013
  Serious: Yes (Other)
  Sender: FDA-Public Use
  Company Number: PHEH2006US05677

PATIENT
  Age: 57 Year
  Sex: Male
  Weight: 90.249 kg

DRUGS (3)
  1. BENADRYL [Concomitant]
     Dosage: 50 MG, UNK
     Route: 042
  2. TYLENOL (CAPLET) [Concomitant]
     Indication: PREMEDICATION
     Dosage: 1000 MG, UNK
  3. DESFERAL [Suspect]
     Indication: SIDEROBLASTIC ANAEMIA
     Dosage: 2GM AFTER WEEKLY TRANSFUSION
     Route: 042
     Dates: start: 20051129, end: 20060330

REACTIONS (6)
  - BLOOD PRESSURE INCREASED [None]
  - DYSPNOEA [None]
  - FACE OEDEMA [None]
  - FLUSHING [None]
  - HYPERTENSION [None]
  - OXYGEN SATURATION DECREASED [None]
